FAERS Safety Report 10075010 (Version 1)
Quarter: 2014Q2

REPORT INFORMATION
  Report Type: Spontaneous
  Country: US (occurrence: US)
  Receive Date: 20140414
  Receipt Date: 20140414
  Transmission Date: 20141212
  Serious: Yes (Death)
  Sender: FDA-Public Use
  Company Number: US-BRISTOL-MYERS SQUIBB COMPANY-20604765

PATIENT
  Age: 53 Year
  Sex: Male

DRUGS (1)
  1. ABILIFY TABS 10 MG [Suspect]
     Route: 048

REACTIONS (1)
  - Death [Fatal]
